FAERS Safety Report 5663215-0 (Version None)
Quarter: 2008Q1

REPORT INFORMATION
  Report Type: 
  Country: None (occurrence: None)
  Receive Date: 20080313
  Receipt Date: 20080304
  Transmission Date: 20080703
  Serious: Yes (Other)
  Sender: FDA-Public Use
  Company Number: DE-TYCO HEALTHCARE/MALLINCKRODT-T200800510

PATIENT

DRUGS (1)
  1. SODIUM IODIDE I 131 [Suspect]
     Indication: BASEDOW'S DISEASE
     Dates: start: 20050201, end: 20050201

REACTIONS (1)
  - AUTOIMMUNE THYROIDITIS [None]
